FAERS Safety Report 7625166-1 (Version None)
Quarter: 2011Q3

REPORT INFORMATION
  Report Type: 
  Country: None (occurrence: None)
  Receive Date: 20110712
  Receipt Date: 20110701
  Transmission Date: 20111222
  Serious: Yes (Other)
  Sender: FDA-Public Use
  Company Number: US-001836

PATIENT
  Sex: Female
  Weight: 85.5 kg

DRUGS (4)
  1. PRENATAL VITAMINS [Concomitant]
  2. OTHER MINERAL SUPPLEMENTS [Concomitant]
  3. KUVAN [Suspect]
     Indication: PHENYLKETONURIA
     Dosage: 1700 MG, QD, ORAL
     Route: 048
     Dates: start: 20110630, end: 20110630
  4. MINERAL TAB [Concomitant]

REACTIONS (3)
  - CONVULSION [None]
  - SPEECH DISORDER [None]
  - SYNCOPE [None]
